FAERS Safety Report 25894633 (Version 3)
Quarter: 2025Q4

REPORT INFORMATION
  Report Type: Report from Study
  Country: EU (occurrence: EU)
  Receive Date: 20251008
  Receipt Date: 20251204
  Transmission Date: 20260117
  Serious: Yes (Hospitalization, Other)
  Sender: JOHNSON AND JOHNSON
  Company Number: EU-JNJFOC-20250808327

PATIENT
  Age: 64 Year
  Sex: Female
  Weight: 67.4 kg

DRUGS (9)
  1. TALQUETAMAB [Suspect]
     Active Substance: TALQUETAMAB
     Indication: Plasma cell myeloma
     Route: 065
     Dates: start: 20250731
  2. TALQUETAMAB [Suspect]
     Active Substance: TALQUETAMAB
     Route: 065
     Dates: start: 20250807
  3. TALQUETAMAB [Suspect]
     Active Substance: TALQUETAMAB
     Route: 065
     Dates: start: 20250814
  4. TALQUETAMAB [Suspect]
     Active Substance: TALQUETAMAB
     Route: 065
     Dates: start: 20250826
  5. TALQUETAMAB [Suspect]
     Active Substance: TALQUETAMAB
     Route: 065
     Dates: start: 20250818
  6. TALQUETAMAB [Suspect]
     Active Substance: TALQUETAMAB
     Route: 065
     Dates: start: 20250911
  7. TALQUETAMAB [Suspect]
     Active Substance: TALQUETAMAB
     Route: 065
     Dates: start: 20250802
  8. TALQUETAMAB [Suspect]
     Active Substance: TALQUETAMAB
     Route: 065
     Dates: start: 20250819
  9. TALQUETAMAB [Suspect]
     Active Substance: TALQUETAMAB
     Route: 065
     Dates: start: 20250925

REACTIONS (12)
  - Cytokine release syndrome [Recovered/Resolved]
  - Immune effector cell-associated neurotoxicity syndrome [Recovered/Resolved]
  - Syncope [Recovered/Resolved]
  - Clostridial infection [Recovered/Resolved]
  - Deep vein thrombosis [Not Recovered/Not Resolved]
  - Thrombocytopenia [Not Recovered/Not Resolved]
  - Neutropenia [Not Recovered/Not Resolved]
  - Stomatitis [Recovered/Resolved]
  - Dermatitis [Not Recovered/Not Resolved]
  - Hyponatraemia [Recovered/Resolved]
  - Diarrhoea [Recovered/Resolved]
  - Anaemia [Not Recovered/Not Resolved]

NARRATIVE: CASE EVENT DATE: 20250803
